FAERS Safety Report 19103389 (Version 3)
Quarter: 2021Q3

REPORT INFORMATION
  Report Type: Spontaneous
  Country: IT (occurrence: IT)
  Receive Date: 20210407
  Receipt Date: 20210729
  Transmission Date: 20211014
  Serious: Yes (Other)
  Sender: FDA-Public Use
  Company Number: IT-ALLERGAN-2113904US

PATIENT
  Sex: Female
  Weight: 43 kg

DRUGS (1)
  1. ESCITALOPRAM OXALATE ? BP [Suspect]
     Active Substance: ESCITALOPRAM OXALATE
     Indication: DEPRESSION
     Dosage: 4 GTT, QD
     Route: 065
     Dates: start: 20210311, end: 20210320

REACTIONS (9)
  - Migraine [Recovering/Resolving]
  - Constipation [Recovering/Resolving]
  - Abdominal pain [Recovering/Resolving]
  - Vertigo [Recovering/Resolving]
  - Eye pain [Recovering/Resolving]
  - Underdose [Unknown]
  - Nausea [Recovering/Resolving]
  - Vision blurred [Recovering/Resolving]
  - Diplopia [Recovering/Resolving]

NARRATIVE: CASE EVENT DATE: 20210317
